FAERS Safety Report 9690575 (Version 1)
Quarter: 2013Q4

REPORT INFORMATION
  Report Type: Spontaneous
  Country: US (occurrence: None)
  Receive Date: 20131114
  Receipt Date: 20131114
  Transmission Date: 20140711
  Serious: Yes (Other)
  Sender: FDA-Public Use
  Company Number: None

PATIENT
  Age: 50 Year
  Sex: Female
  Weight: 83.01 kg

DRUGS (2)
  1. BYDUREON [Suspect]
     Indication: BLOOD GLUCOSE ABNORMAL
     Route: 058
     Dates: start: 20130710, end: 20130906
  2. LANTUS SOLOSTAR [Concomitant]
     Route: 058
     Dates: start: 20130710, end: 20130906

REACTIONS (2)
  - Pain [None]
  - Mass [None]
